FAERS Safety Report 6799721 (Version 9)
Quarter: 2013Q2

REPORT INFORMATION
  Report Type: Spontaneous
  Country: US (occurrence: US)
  Receive Date: 20081030
  Receipt Date: 20130613
  Transmission Date: 20140414
  Serious: Yes (Hospitalization, Other)
  Sender: FDA-Public Use
  Company Number: US-ROCHE-577337

PATIENT
  Age: 16 Year
  Sex: Male
  Weight: 55.8 kg

DRUGS (3)
  1. ACCUTANE [Suspect]
     Indication: ACNE
     Route: 048
     Dates: start: 20000317, end: 20000510
  2. ACCUTANE [Suspect]
     Route: 048
     Dates: start: 20000511, end: 20000711
  3. ACCUTANE [Suspect]
     Route: 048
     Dates: start: 20000712, end: 20000809

REACTIONS (13)
  - Colitis ulcerative [Recovered/Resolved]
  - Small intestinal obstruction [Not Recovered/Not Resolved]
  - Post procedural haemorrhage [Recovered/Resolved]
  - Colitis [Recovered/Resolved]
  - Dehydration [Recovered/Resolved]
  - Anaemia [Recovering/Resolving]
  - Inflammatory bowel disease [Unknown]
  - Depression [Unknown]
  - Crohn^s disease [Unknown]
  - Lip dry [Unknown]
  - Dry skin [Recovered/Resolved]
  - Blood lactate dehydrogenase increased [Unknown]
  - Nephrolithiasis [Unknown]
